FAERS Safety Report 4854606-6 (Version None)
Quarter: 2005Q4

REPORT INFORMATION
  Report Type: 
  Country: None (occurrence: None)
  Receive Date: 20051215
  Receipt Date: 20050718
  Transmission Date: 20060501
  Serious: Yes (Hospitalization, Other)
  Sender: FDA-Public Use
  Company Number: US-MERCK-0507USA02881

PATIENT
  Age: 69 Year
  Sex: Female
  Weight: 70 kg

DRUGS (2)
  1. VIOXX [Suspect]
     Indication: ARTHRITIS
     Route: 048
     Dates: start: 19990101, end: 20010101
  2. PREMARIN [Concomitant]
     Route: 065

REACTIONS (3)
  - CARDIOVASCULAR DISORDER [None]
  - HEAD INJURY [None]
  - MYOCARDIAL INFARCTION [None]
